FAERS Safety Report 24465973 (Version 1)
Quarter: 2024Q4

REPORT INFORMATION
  Report Type: Report from Study
  Country: US (occurrence: US)
  Receive Date: 20241018
  Receipt Date: 20241018
  Transmission Date: 20250115
  Serious: No
  Sender: ROCHE
  Company Number: US-ROCHE-3535514

PATIENT
  Sex: Male

DRUGS (1)
  1. XOLAIR [Suspect]
     Active Substance: OMALIZUMAB
     Indication: Hypersensitivity
     Route: 065
     Dates: start: 20231007, end: 20231207

REACTIONS (3)
  - Hypersensitivity [Unknown]
  - Rash [Unknown]
  - Off label use [Unknown]
